FAERS Safety Report 14399104 (Version 2)
Quarter: 2018Q1

REPORT INFORMATION
  Report Type: Spontaneous
  Country: US (occurrence: US)
  Receive Date: 20180117
  Receipt Date: 20180326
  Transmission Date: 20180509
  Serious: No
  Sender: FDA-Public Use
  Company Number: US-JNJFOC-20171223980

PATIENT
  Age: 36 Year
  Sex: Female

DRUGS (2)
  1. XARELTO [Suspect]
     Active Substance: RIVAROXABAN
     Indication: PULMONARY EMBOLISM
     Dosage: RIVAROXABAN 15 MG TWICE A DAY UNTIL 03-JUL-2016 AND THEN WAS ON RIVAROXABAN 20 MG DAILY
     Route: 048
     Dates: start: 20160611, end: 201703
  2. XARELTO [Suspect]
     Active Substance: RIVAROXABAN
     Indication: PULMONARY EMBOLISM
     Dosage: RIVAROXABAN 15 MG TWICE A DAY UNTIL 03-JUL-2016 AND THEN WAS ON RIVAROXABAN 20 MG DAILY
     Route: 048
     Dates: start: 201601

REACTIONS (1)
  - Haemoptysis [Recovering/Resolving]

NARRATIVE: CASE EVENT DATE: 20160929
